FAERS Safety Report 5653503-6 (Version None)
Quarter: 2008Q1

REPORT INFORMATION
  Report Type: 
  Country: None (occurrence: None)
  Receive Date: 20080131
  Receipt Date: 20071009
  Transmission Date: 20080703
  Serious: No
  Sender: FDA-Public Use
  Company Number: US200710002601

PATIENT
  Age: 45 Year
  Sex: Male
  Weight: 122.4 kg

DRUGS (4)
  1. BYETTA [Suspect]
     Indication: TYPE 1 DIABETES MELLITUS
     Dosage: 5 UG, 2/D, SUBCUTANEOUS ; 10 UG, DAILY (1/D), SUBCUTANEOUS ; 10 UG, 2/D, SUBCUTANEOUS
     Route: 058
     Dates: start: 20070801, end: 20070801
  2. BYETTA [Suspect]
     Indication: TYPE 1 DIABETES MELLITUS
     Dosage: 5 UG, 2/D, SUBCUTANEOUS ; 10 UG, DAILY (1/D), SUBCUTANEOUS ; 10 UG, 2/D, SUBCUTANEOUS
     Route: 058
     Dates: start: 20070801, end: 20070901
  3. BYETTA [Suspect]
     Indication: TYPE 1 DIABETES MELLITUS
     Dosage: 5 UG, 2/D, SUBCUTANEOUS ; 10 UG, DAILY (1/D), SUBCUTANEOUS ; 10 UG, 2/D, SUBCUTANEOUS
     Route: 058
     Dates: start: 20070901
  4. HUMULIN REGULAR (INSULIN HUMAN) [Concomitant]

REACTIONS (4)
  - DECREASED APPETITE [None]
  - INCORRECT DOSE ADMINISTERED [None]
  - NAUSEA [None]
  - WEIGHT DECREASED [None]
